FAERS Safety Report 10891504 (Version 5)
Quarter: 2015Q4

REPORT INFORMATION
  Report Type: Spontaneous
  Country: GT (occurrence: GT)
  Receive Date: 20150306
  Receipt Date: 20151201
  Transmission Date: 20160304
  Serious: Yes (Death, Hospitalization)
  Sender: FDA-Public Use
  Company Number: GT-BIOGENIDEC-2015BI026750

PATIENT
  Age: 53 Year
  Sex: Male

DRUGS (1)
  1. TYSABRI [Suspect]
     Active Substance: NATALIZUMAB
     Indication: RELAPSING-REMITTING MULTIPLE SCLEROSIS
     Route: 042
     Dates: start: 201207

REACTIONS (3)
  - Metastasis [Not Recovered/Not Resolved]
  - Chronic sinusitis [Unknown]
  - Adenocarcinoma [Fatal]

NARRATIVE: CASE EVENT DATE: 201411
